FAERS Safety Report 7230923-X (Version None)
Quarter: 2011Q1

REPORT INFORMATION
  Report Type: 
  Country: None (occurrence: None)
  Receive Date: 20110118
  Receipt Date: 20110104
  Transmission Date: 20110831
  Serious: Yes (Life-Threatening, Other)
  Sender: FDA-Public Use
  Company Number: US-ROCHE-736244

PATIENT
  Sex: Female
  Weight: 46.7 kg

DRUGS (6)
  1. ACTEMRA [Suspect]
     Route: 042
     Dates: start: 20100922, end: 20100922
  2. ACTEMRA [Suspect]
     Route: 042
     Dates: start: 20101020, end: 20101020
  3. METHOTREXATE [Concomitant]
     Route: 048
  4. PREDNISONE [Concomitant]
  5. ACTEMRA [Suspect]
     Dosage: FORM: INFUSION
     Route: 042
     Dates: start: 20100825, end: 20100825
  6. METHOTREXATE [Concomitant]
     Route: 048

REACTIONS (4)
  - OEDEMA PERIPHERAL [None]
  - HYPOTENSION [None]
  - CHEST PAIN [None]
  - DYSPNOEA [None]
